FAERS Safety Report 8526598 (Version 3)
Quarter: 2014Q1

REPORT INFORMATION
  Report Type: Report from Study
  Country: BR (occurrence: BR)
  Receive Date: 20120423
  Receipt Date: 20140224
  Transmission Date: 20141002
  Serious: Yes (Other)
  Sender: FDA-Public Use
  Company Number: BR-ROCHE-1058412

PATIENT
  Sex: Female
  Weight: 68 kg

DRUGS (4)
  1. MABTHERA [Suspect]
     Indication: RHEUMATOID ARTHRITIS
     Dosage: THE MOST RECENT MABTHERA INFUSION WAS PERFORMED ON 22-MAY-2012.
     Route: 065
     Dates: start: 20100201
  2. ARAVA [Concomitant]
     Route: 065
  3. NAPROXEN [Concomitant]
     Route: 065
  4. PREDNISONE [Concomitant]
     Route: 065

REACTIONS (2)
  - Osteoarthritis [Not Recovered/Not Resolved]
  - Tooth disorder [Unknown]
